FAERS Safety Report 5504785-2 (Version None)
Quarter: 2007Q4

REPORT INFORMATION
  Report Type: 
  Country: None (occurrence: None)
  Receive Date: 20071031
  Receipt Date: 20071031
  Transmission Date: 20080405
  Serious: Yes (Other)
  Sender: FDA-Public Use
  Company Number: None

PATIENT
  Age: 61 Year
  Sex: Female
  Weight: 80.4 kg

DRUGS (5)
  1. ZOLINZA [Suspect]
     Indication: BREAST CANCER METASTATIC
     Dosage: 400 MG DAILY 21 OF 28 DAYS P.O. 30 MG DAILY 21 DAY OF 28 DAYS PO
     Route: 048
     Dates: start: 20070504, end: 20070524
  2. ZOLINZA [Suspect]
     Indication: BREAST CANCER METASTATIC
     Dosage: 400 MG DAILY 21 OF 28 DAYS P.O. 30 MG DAILY 21 DAY OF 28 DAYS PO
     Route: 048
     Dates: start: 20070601, end: 20071024
  3. TAMOXIFEN CITRATE [Concomitant]
  4. ZOMETA [Concomitant]
  5. GLUCOSAMINE CHONDROITIN [Concomitant]

REACTIONS (5)
  - ACTIVATED PARTIAL THROMBOPLASTIN TIME SHORTENED [None]
  - DEEP VEIN THROMBOSIS [None]
  - PROTHROMBIN TIME SHORTENED [None]
  - PULMONARY EMBOLISM [None]
  - THROMBOCYTOPENIA [None]
